FAERS Safety Report 6603399-0 (Version None)
Quarter: 2010Q1

REPORT INFORMATION
  Report Type: 
  Country: None (occurrence: None)
  Receive Date: 20100226
  Receipt Date: 20090414
  Transmission Date: 20100710
  Serious: No
  Sender: FDA-Public Use
  Company Number: A0778746A

PATIENT
  Age: 44 Year
  Sex: Male

DRUGS (3)
  1. VALTREX [Suspect]
     Indication: GENITAL HERPES
     Dosage: 1G TWICE PER DAY
     Route: 048
     Dates: start: 20090404
  2. LISINOPRIL [Concomitant]
  3. NEXIUM [Concomitant]

REACTIONS (5)
  - ABNORMAL SENSATION IN EYE [None]
  - DYSPNOEA [None]
  - NASOPHARYNGITIS [None]
  - OROPHARYNGEAL PAIN [None]
  - SNEEZING [None]
